FAERS Safety Report 7953884-4 (Version None)
Quarter: 2011Q4

REPORT INFORMATION
  Report Type: 
  Country: None (occurrence: None)
  Receive Date: 20111202
  Receipt Date: 20111122
  Transmission Date: 20120403
  Serious: Yes (Other)
  Sender: FDA-Public Use
  Company Number: CA-JNJFOC-20111110921

PATIENT
  Sex: Female

DRUGS (7)
  1. ATIVAN [Concomitant]
  2. CODEINE [Concomitant]
  3. SEROQUEL [Concomitant]
  4. REMICADE [Suspect]
     Route: 042
     Dates: start: 20110817
  5. WELLBUTRIN [Concomitant]
  6. REMICADE [Suspect]
     Indication: CROHN'S DISEASE
     Route: 042
  7. ZOFRAN [Concomitant]

REACTIONS (1)
  - OVARIAN GERM CELL TERATOMA BENIGN [None]
